FAERS Safety Report 23841174 (Version 2)
Quarter: 2024Q2

REPORT INFORMATION
  Report Type: Spontaneous
  Country: MY (occurrence: MY)
  Receive Date: 20240510
  Receipt Date: 20240516
  Transmission Date: 20240716
  Serious: Yes (Hospitalization)
  Sender: FDA-Public Use
  Company Number: MY-MYLANLABS-2024M1039989

PATIENT
  Sex: Female

DRUGS (1)
  1. XANAX [Suspect]
     Active Substance: ALPRAZOLAM
     Indication: Product used for unknown indication
     Dosage: UNK, QD, (UP TO 6 TABS DAILY, CURRENTLY TAKING 2 TO 3 TABS PER DAY)
     Route: 065

REACTIONS (4)
  - Sinus bradycardia [Unknown]
  - Myalgia [Unknown]
  - Headache [Unknown]
  - Dizziness [Unknown]
